FAERS Safety Report 19283114 (Version 1)
Quarter: 2021Q2

REPORT INFORMATION
  Report Type: Spontaneous
  Country: US (occurrence: US)
  Receive Date: 20210520
  Receipt Date: 20210520
  Transmission Date: 20210717
  Serious: No
  Sender: FDA-Public Use
  Company Number: US-GALDERMA-US2021007810

PATIENT

DRUGS (1)
  1. DIFFERIN GEL [Suspect]
     Active Substance: ADAPALENE
     Indication: ACNE
     Dosage: 0.1%
     Route: 061
     Dates: end: 202102

REACTIONS (5)
  - Pain of skin [Unknown]
  - Skin irritation [Unknown]
  - Skin discolouration [Unknown]
  - Acne [Not Recovered/Not Resolved]
  - Skin haemorrhage [Unknown]
